FAERS Safety Report 8826668 (Version 1)
Quarter: 2012Q4

REPORT INFORMATION
  Report Type: 
  Country: US (occurrence: US)
  Receive Date: 20121005
  Receipt Date: 20121005
  Transmission Date: 20130627
  Serious: Yes (Hospitalization)
  Sender: FDA-Public Use
  Company Number: US-GLAXOSMITHKLINE-A0788536A

PATIENT
  Age: 58 Year
  Sex: Female
  Weight: 78.2 kg

DRUGS (6)
  1. AVANDIA [Suspect]
     Indication: DIABETES MELLITUS
     Dosage: 4MG Per day
     Route: 048
     Dates: start: 20010904, end: 2007
  2. ACCUPRIL [Concomitant]
  3. LIPITOR [Concomitant]
  4. ZOLOFT [Concomitant]
  5. TOPROL XL [Concomitant]
  6. CELEBREX [Concomitant]
     Dates: end: 2004

REACTIONS (4)
  - Myocardial infarction [Not Recovered/Not Resolved]
  - Cerebrovascular accident [Unknown]
  - Heart injury [Unknown]
  - Transient ischaemic attack [Unknown]
